FAERS Safety Report 13154980 (Version 1)
Quarter: 2017Q1

REPORT INFORMATION
  Report Type: Report from Study
  Country: US (occurrence: US)
  Receive Date: 20170126
  Receipt Date: 20170126
  Transmission Date: 20170428
  Serious: No
  Sender: FDA-Public Use
  Company Number: US-AMGEN-USASL2017007228

PATIENT
  Sex: Male

DRUGS (2)
  1. KYPROLIS [Suspect]
     Active Substance: CARFILZOMIB
     Dosage: UNK, EVERY OTHER WEEK
     Route: 065
     Dates: start: 2015
  2. KYPROLIS [Suspect]
     Active Substance: CARFILZOMIB
     Indication: AMYLOIDOSIS
     Dosage: UNK UNK, QWK
     Route: 065

REACTIONS (2)
  - Therapeutic response unexpected [Unknown]
  - Off label use [Unknown]
